FAERS Safety Report 18030804 (Version 6)
Quarter: 2021Q2

REPORT INFORMATION
  Report Type: Report from Study
  Country: None (occurrence: US)
  Receive Date: 20200715
  Receipt Date: 20210527
  Transmission Date: 20210717
  Serious: Yes (Hospitalization, Other)
  Sender: FDA-Public Use
  Company Number: US-ABBVIE-20K-163-3311665-00

PATIENT
  Age: 70 Year
  Sex: Female
  Weight: 84 kg

DRUGS (7)
  1. METHOTREXATE. [Suspect]
     Active Substance: METHOTREXATE
     Indication: PSORIASIS
     Route: 065
  2. HUMIRA [Suspect]
     Active Substance: ADALIMUMAB
     Indication: RHEUMATOID ARTHRITIS
     Dosage: CITRATE FREE
     Route: 058
     Dates: start: 202007
  3. MODERNA COVID?19 VACCINE [Suspect]
     Active Substance: CX-024414
     Dosage: MODERNA
     Route: 030
     Dates: start: 20210127, end: 20210127
  4. LIDOCAINE. [Concomitant]
     Active Substance: LIDOCAINE
     Indication: HERPES ZOSTER
     Dates: start: 202009, end: 202010
  5. MODERNA COVID?19 VACCINE [Suspect]
     Active Substance: CX-024414
     Indication: COVID-19 IMMUNISATION
     Dosage: MODERNA
     Route: 030
     Dates: start: 20201230, end: 20201230
  6. HUMIRA [Suspect]
     Active Substance: ADALIMUMAB
     Indication: CROHN^S DISEASE
     Dosage: CITRATE FREE
     Route: 058
     Dates: start: 2010, end: 201006
  7. DOXYCYCLINE. [Concomitant]
     Active Substance: DOXYCYCLINE
     Indication: FOLLICULITIS

REACTIONS (18)
  - Hepatic enzyme increased [Recovering/Resolving]
  - Procedural vomiting [Recovering/Resolving]
  - Feeling abnormal [Unknown]
  - Headache [Recovered/Resolved]
  - Appendicitis [Recovered/Resolved]
  - Headache [Recovered/Resolved]
  - Weight increased [Not Recovered/Not Resolved]
  - Vaccination site pain [Recovered/Resolved]
  - Vaccination site pain [Recovered/Resolved]
  - Diabetes mellitus [Not Recovered/Not Resolved]
  - Hepatic steatosis [Not Recovered/Not Resolved]
  - Cough [Unknown]
  - Fatigue [Unknown]
  - Herpes zoster [Recovered/Resolved]
  - Ovarian cyst [Recovered/Resolved]
  - General physical condition abnormal [Not Recovered/Not Resolved]
  - False positive tuberculosis test [Recovering/Resolving]
  - Psoriasis [Not Recovered/Not Resolved]

NARRATIVE: CASE EVENT DATE: 2012
